FAERS Safety Report 9675444 (Version 1)
Quarter: 2013Q4

REPORT INFORMATION
  Report Type: Spontaneous
  Country: US (occurrence: US)
  Receive Date: 20131107
  Receipt Date: 20131107
  Transmission Date: 20140711
  Serious: Yes (Other)
  Sender: FDA-Public Use
  Company Number: PHHY2013US123224

PATIENT
  Age: 10 Year
  Sex: Male

DRUGS (3)
  1. VALPROIC ACID [Suspect]
  2. BEVACIZUMAB [Suspect]
  3. DEXAMETHASONE [Concomitant]

REACTIONS (3)
  - Tumour necrosis [Not Recovered/Not Resolved]
  - Lip swelling [Recovered/Resolved]
  - Rash [Recovered/Resolved]
